FAERS Safety Report 15117026 (Version 1)
Quarter: 2018Q3

REPORT INFORMATION
  Report Type: Spontaneous
  Country: US (occurrence: US)
  Receive Date: 20180706
  Receipt Date: 20180706
  Transmission Date: 20181010
  Serious: Yes (Death)
  Sender: FDA-Public Use
  Company Number: US-JNJFOC-20180705598

PATIENT
  Sex: Female
  Weight: 57 kg

DRUGS (4)
  1. METOLAZONE. [Concomitant]
     Active Substance: METOLAZONE
  2. K?DUR [Concomitant]
     Active Substance: POTASSIUM CHLORIDE
  3. MAGNESIUM OXIDE. [Concomitant]
     Active Substance: MAGNESIUM OXIDE
  4. IMBRUVICA [Suspect]
     Active Substance: IBRUTINIB
     Indication: PRODUCT USED FOR UNKNOWN INDICATION
     Route: 048
     Dates: start: 20180522

REACTIONS (1)
  - Death [Fatal]
